FAERS Safety Report 19605506 (Version 1)
Quarter: 2021Q3

REPORT INFORMATION
  Report Type: Spontaneous
  Country: NO (occurrence: NO)
  Receive Date: 20210723
  Receipt Date: 20210723
  Transmission Date: 20211014
  Serious: Yes (Other)
  Sender: FDA-Public Use
  Company Number: NVSC2021NO163654

PATIENT
  Sex: Female

DRUGS (1)
  1. ESTRADOT [Suspect]
     Active Substance: ESTRADIOL
     Indication: PRODUCT USED FOR UNKNOWN INDICATION
     Dosage: 50 UG (USED PATCH FOR 4 YEARS)
     Route: 062

REACTIONS (2)
  - Haemorrhage [Unknown]
  - Breast pain [Unknown]

NARRATIVE: CASE EVENT DATE: 20210713
